FAERS Safety Report 16139068 (Version 2)
Quarter: 2019Q2

REPORT INFORMATION
  Report Type: Report from Study
  Country: FR (occurrence: FR)
  Receive Date: 20190401
  Receipt Date: 20190510
  Transmission Date: 20190711
  Serious: Yes (Life-Threatening, Hospitalization, Other)
  Sender: FDA-Public Use
  Company Number: FR-ACCORD-096488

PATIENT
  Age: 78 Year
  Sex: Male
  Weight: 88 kg

DRUGS (7)
  1. BEVACIZUMAB. [Concomitant]
     Active Substance: BEVACIZUMAB
     Indication: COLORECTAL CANCER
  2. OXALIPLATIN. [Suspect]
     Active Substance: OXALIPLATIN
     Indication: COLORECTAL CANCER
     Dosage: 150 ML OF NACL 0.9%
     Route: 042
  3. IRINOTECAN [Concomitant]
     Active Substance: IRINOTECAN
     Indication: COLORECTAL CANCER
  4. PACLITAXEL/PACLITAXEL LIPOSOME [Concomitant]
     Indication: COLORECTAL CANCER
  5. CISPLATIN. [Suspect]
     Active Substance: CISPLATIN
     Indication: COLORECTAL CANCER
     Dosage: 150 ML OF NACL 0.9%
     Route: 042
  6. FLUOROURACIL. [Concomitant]
     Active Substance: FLUOROURACIL
     Indication: COLORECTAL CANCER
  7. SODIUM CHLORIDE. [Concomitant]
     Active Substance: SODIUM CHLORIDE
     Dosage: PIPAC,150 ML OF NACL 0.9% FOLLOWING NEBULIZATION

REACTIONS (2)
  - Anaphylactic reaction [Recovered/Resolved]
  - Hypersensitivity [Unknown]
